FAERS Safety Report 24130733 (Version 2)
Quarter: 2024Q3

REPORT INFORMATION
  Report Type: Report from Study
  Country: US (occurrence: US)
  Receive Date: 20240724
  Receipt Date: 20240914
  Transmission Date: 20241017
  Serious: Yes (Other)
  Sender: ABBVIE
  Company Number: US-ABBVIE-5847638

PATIENT
  Age: 58 Year
  Sex: Female

DRUGS (5)
  1. RINVOQ [Suspect]
     Active Substance: UPADACITINIB
     Indication: Dermatitis atopic
     Route: 048
     Dates: start: 20230505
  2. RINVOQ [Suspect]
     Active Substance: UPADACITINIB
     Indication: Dermatitis atopic
     Dosage: 1 PILL
     Route: 048
  3. BUSPIRONE [Concomitant]
     Active Substance: BUSPIRONE HYDROCHLORIDE
     Indication: Product used for unknown indication
     Dosage: PILLS, FREQUENCY 120
     Route: 065
     Dates: start: 20240705
  4. OLMESARTAN [Concomitant]
     Active Substance: OLMESARTAN
     Indication: Product used for unknown indication
     Dosage: PILL, FREQUENCY:90
     Route: 065
     Dates: start: 20240613
  5. VENLAFAXINE [Concomitant]
     Active Substance: VENLAFAXINE HYDROCHLORIDE
     Indication: Product used for unknown indication
     Dosage: PILL, FREQUENCY:60
     Route: 065
     Dates: start: 20240610

REACTIONS (3)
  - Oral surgery [Not Recovered/Not Resolved]
  - Bone loss [Unknown]
  - Jaw fracture [Unknown]

NARRATIVE: CASE EVENT DATE: 20240201
